FAERS Safety Report 21420456 (Version 1)
Quarter: 2022Q4

REPORT INFORMATION
  Report Type: Spontaneous
  Country: US (occurrence: US)
  Receive Date: 20221007
  Receipt Date: 20221007
  Transmission Date: 20230113
  Serious: Yes (Other)
  Sender: FDA-Public Use
  Company Number: US-ORG100016242-2022002883

PATIENT
  Sex: Female

DRUGS (1)
  1. EXPAREL [Suspect]
     Active Substance: BUPIVACAINE
     Indication: Hysterectomy
     Dosage: NOT PROVIDED
     Route: 050

REACTIONS (5)
  - Haemoglobin decreased [Unknown]
  - Abdominal wall haematoma [Unknown]
  - Procedural nausea [Unknown]
  - Procedural vomiting [Unknown]
  - Administration site pain [Unknown]
